FAERS Safety Report 6896806-X (Version None)
Quarter: 2010Q3

REPORT INFORMATION
  Report Type: 
  Country: None (occurrence: None)
  Receive Date: 20100802
  Receipt Date: 20070310
  Transmission Date: 20110219
  Serious: Yes (Other)
  Sender: FDA-Public Use
  Company Number: US-PFIZER INC-2006133355

PATIENT
  Sex: Male
  Weight: 108.4 kg

DRUGS (2)
  1. LYRICA [Suspect]
     Indication: DIABETIC NEUROPATHY
     Dates: start: 20061021
  2. AVANDARYL [Concomitant]
     Dosage: 4

REACTIONS (2)
  - SOMNOLENCE [None]
  - WEIGHT INCREASED [None]
